FAERS Safety Report 7914822-3 (Version None)
Quarter: 2011Q4

REPORT INFORMATION
  Report Type: 
  Country: None (occurrence: None)
  Receive Date: 20111115
  Receipt Date: 20111109
  Transmission Date: 20120403
  Serious: Yes (Other)
  Sender: FDA-Public Use
  Company Number: US-SANOFI-AVENTIS-2011SA074138

PATIENT
  Age: 76 Year
  Sex: Female

DRUGS (1)
  1. MULTAQ [Suspect]
     Indication: ATRIAL FIBRILLATION
     Route: 048
     Dates: start: 20110101

REACTIONS (4)
  - PRODUCT QUALITY ISSUE [None]
  - ATRIAL FIBRILLATION [None]
  - FATIGUE [None]
  - MEDICATION RESIDUE [None]
